FAERS Safety Report 8632957 (Version 5)
Quarter: 2013Q4

REPORT INFORMATION
  Report Type: Spontaneous
  Country: US (occurrence: FR)
  Receive Date: 20120605
  Receipt Date: 20131031
  Transmission Date: 20140711
  Serious: Yes (Other)
  Sender: FDA-Public Use
  Company Number: FR-009507513-2012SP028859

PATIENT
  Age: 48 Year
  Sex: Female

DRUGS (6)
  1. VICTRELIS [Suspect]
     Indication: HEPATITIS C
     Dosage: 800 MG, TID
     Dates: start: 20110530, end: 20120402
  2. PEGASYS [Suspect]
     Indication: HEPATITIS C
     Dosage: 150 ?G, QW
     Dates: start: 20110502, end: 20120402
  3. COPEGUS [Suspect]
     Indication: HEPATITIS C
     Dosage: 1000 MG, QD
     Dates: start: 20110502, end: 20120402
  4. SPECIAFOLDINE [Concomitant]
     Indication: VITAMIN SUPPLEMENTATION
     Dosage: 2 DF, QD
     Dates: start: 20110411
  5. DELURSAN [Concomitant]
     Indication: FATIGUE
     Dates: start: 2007
  6. BETASELEN [Concomitant]
     Indication: FATIGUE
     Dates: start: 2007

REACTIONS (2)
  - Porphyria non-acute [Recovering/Resolving]
  - Dysaesthesia [Not Recovered/Not Resolved]
